FAERS Safety Report 20160007 (Version 2)
Quarter: 2023Q4

REPORT INFORMATION
  Report Type: Spontaneous
  Country: FR (occurrence: FR)
  Receive Date: 20211208
  Receipt Date: 20231106
  Transmission Date: 20240110
  Serious: Yes (Death, Hospitalization)
  Sender: FDA-Public Use
  Company Number: FR-Accord-233081

PATIENT
  Age: 72 Year
  Sex: Male
  Weight: 62.5 kg

DRUGS (22)
  1. GEMCITABINE HYDROCHLORIDE [Suspect]
     Active Substance: GEMCITABINE HYDROCHLORIDE
     Indication: Diffuse large B-cell lymphoma stage IV
     Dosage: 1000 MILLIGRAM/SQ. METER, SINGLE DOSE
     Route: 042
     Dates: start: 20210701, end: 20210701
  2. OXALIPLATIN [Suspect]
     Active Substance: OXALIPLATIN
     Indication: Diffuse large B-cell lymphoma stage IV
     Dosage: 100 MILLIGRAM/SQ. METER, SINGLE DOSE?REGIMEN-1
     Route: 042
     Dates: start: 20210701
  3. EPCORITAMAB [Suspect]
     Active Substance: EPCORITAMAB
     Indication: Diffuse large B-cell lymphoma stage IV
     Dosage: PRIMING DOSE: 0.16 MG, SINGLE?REGIMEN-1
     Route: 058
     Dates: start: 20210701, end: 20210701
  4. POLARAMINE [Concomitant]
     Active Substance: DEXCHLORPHENIRAMINE MALEATE
     Indication: Premedication
     Dosage: STRENGTH: 5 MG
     Route: 042
     Dates: start: 20210701, end: 20210701
  5. DOLIPRANE [Concomitant]
     Active Substance: ACETAMINOPHEN
     Indication: Premedication
     Dosage: STRENGTH: 1000 MG
     Route: 048
     Dates: start: 20210701, end: 20210701
  6. SOLUPRED [Concomitant]
     Indication: Premedication
     Dosage: STRENGTH: 100MG
     Dates: start: 20210701, end: 20210704
  7. ALLOPURINOL [Concomitant]
     Active Substance: ALLOPURINOL
     Dates: start: 20201018
  8. BACTRIM [Concomitant]
     Active Substance: SULFAMETHOXAZOLE\TRIMETHOPRIM
     Dates: start: 202105
  9. BECLOMETHASONE [Concomitant]
     Active Substance: BECLOMETHASONE
     Dates: start: 20210218
  10. FORMOTEROL [Concomitant]
     Active Substance: FORMOTEROL
     Dates: start: 20210218
  11. ENTECAVIR [Concomitant]
     Active Substance: ENTECAVIR
     Indication: Prophylaxis
     Dates: start: 20210709
  12. DIETARY SUPPLEMENT [Concomitant]
     Active Substance: DIETARY SUPPLEMENT
     Dates: start: 20210708
  13. FUROSEMIDE [Concomitant]
     Active Substance: FUROSEMIDE
     Dates: start: 20201018
  14. LENOGRASTIM [Concomitant]
     Active Substance: LENOGRASTIM
     Dates: start: 20210707, end: 20210712
  15. PANTOPRAZOLE [Concomitant]
     Active Substance: PANTOPRAZOLE
     Dates: start: 20201018
  16. SCOPOLAMINE [Concomitant]
     Active Substance: SCOPOLAMINE
     Dates: start: 20210713
  17. FLUCONAZOLE [Concomitant]
     Active Substance: FLUCONAZOLE
     Dates: start: 20210614, end: 20210630
  18. VALACYCLOVIR HYDROCHLORIDE [Concomitant]
     Active Substance: VALACYCLOVIR HYDROCHLORIDE
     Dates: start: 20201018
  19. ZITHROMAX [Concomitant]
     Active Substance: AZITHROMYCIN DIHYDRATE
     Dates: start: 20210218
  20. TAMSULOSIN HYDROCHLORIDE [Concomitant]
     Active Substance: TAMSULOSIN HYDROCHLORIDE
     Dates: start: 20210713
  21. EPCORITAMAB [Suspect]
     Active Substance: EPCORITAMAB
     Indication: Diffuse large B-cell lymphoma stage IV
     Dosage: INTERMEDIATE DOSE: 0.8 MG, SINGLE?REGIMEN-1 DAY 8
     Route: 058
     Dates: start: 20210715
  22. GEMCITABINE HYDROCHLORIDE [Suspect]
     Active Substance: GEMCITABINE HYDROCHLORIDE
     Indication: Diffuse large B-cell lymphoma stage IV
     Dosage: CYCLE 1 DAY 15
     Route: 042
     Dates: start: 20210722

REACTIONS (3)
  - Septic shock [Recovered/Resolved]
  - Off label use [Unknown]
  - Lung disorder [Fatal]

NARRATIVE: CASE EVENT DATE: 20210704
